FAERS Safety Report 5007087-6 (Version None)
Quarter: 2006Q2

REPORT INFORMATION
  Report Type: 
  Country: None (occurrence: None)
  Receive Date: 20060517
  Receipt Date: 20060505
  Transmission Date: 20061013
  Serious: Yes (Other)
  Sender: FDA-Public Use
  Company Number: 2006060471

PATIENT
  Age: 84 Year
  Sex: Male
  Weight: 79.3795 kg

DRUGS (6)
  1. LIPITOR [Suspect]
     Indication: BLOOD CHOLESTEROL INCREASED
     Dosage: (40 MG,)
  2. ZOLOFT [Concomitant]
  3. DILANTIN [Concomitant]
  4. CLONAZEPAM [Concomitant]
  5. PROTONIX [Concomitant]
  6. TOPROL-XL [Concomitant]

REACTIONS (2)
  - BASAL CELL CARCINOMA [None]
  - THERAPY NON-RESPONDER [None]
